FAERS Safety Report 5297379-8 (Version None)
Quarter: 2007Q2

REPORT INFORMATION
  Report Type: 
  Country: None (occurrence: None)
  Receive Date: 20070416
  Receipt Date: 20070402
  Transmission Date: 20071010
  Serious: Yes (Other)
  Sender: FDA-Public Use
  Company Number: PHBS2007JP03833

PATIENT
  Age: 10 Year
  Sex: Male
  Weight: 18 kg

DRUGS (5)
  1. TEGRETOL [Suspect]
     Indication: EPILEPSY
     Dosage: UNK, UNK
     Route: 048
     Dates: start: 20070101
  2. TEGRETOL [Suspect]
     Dosage: 23 MG/KG/DAY (414 MG)
     Route: 048
     Dates: start: 20070101
  3. ALEVIATIN [Suspect]
     Route: 048
  4. PRIMIDONE [Suspect]
     Route: 065
  5. POTASSIUM BROMIDE [Suspect]
     Route: 065

REACTIONS (1)
  - BLOOD CREATINE PHOSPHOKINASE INCREASED [None]
